FAERS Safety Report 25006047 (Version 3)
Quarter: 2025Q1

REPORT INFORMATION
  Report Type: Spontaneous
  Country: CN (occurrence: None)
  Receive Date: 20250224
  Receipt Date: 20250326
  Transmission Date: 20250408
  Serious: Yes (Death, Other)
  Sender: INCYTE
  Company Number: CN-002147023-NVSC2025CN030196

PATIENT
  Age: 54 Year

DRUGS (2)
  1. RUXOLITINIB [Suspect]
     Active Substance: RUXOLITINIB
     Indication: Product used for unknown indication
     Dosage: 1 DOSAGE FORM, BID
  2. MEROPENEM [Concomitant]
     Active Substance: MEROPENEM
     Indication: Symptomatic treatment
     Route: 065

REACTIONS (10)
  - Drug ineffective [Unknown]
  - Infection [Fatal]
  - Loss of consciousness [Not Recovered/Not Resolved]
  - Pneumonia [Not Recovered/Not Resolved]
  - Multiple organ dysfunction syndrome [Fatal]
  - Confusional state [Not Recovered/Not Resolved]
  - Platelet count decreased [Recovering/Resolving]
  - Somnolence [Not Recovered/Not Resolved]
  - Feeling abnormal [Unknown]
  - Product use in unapproved indication [Not Recovered/Not Resolved]
